FAERS Safety Report 16468634 (Version 1)
Quarter: 2019Q2

REPORT INFORMATION
  Report Type: Report from Study
  Country: GB (occurrence: GB)
  Receive Date: 20190624
  Receipt Date: 20190624
  Transmission Date: 20190711
  Serious: Yes (Life-Threatening, Hospitalization, Other)
  Sender: FDA-Public Use
  Company Number: GB-RECRO GAINESVILLE LLC-REPH-2019-000106

PATIENT
  Age: 19 Year
  Sex: Female

DRUGS (1)
  1. VERAPAMIL HYDROCHLORIDE SUSTAINED RELEASE [Suspect]
     Active Substance: VERAPAMIL HYDROCHLORIDE
     Dosage: 3200 MILLIGRAM, ONE TIME DOSE
     Route: 048

REACTIONS (7)
  - Cyanosis [Recovered/Resolved]
  - Defect conduction intraventricular [Recovered/Resolved]
  - Intentional overdose [Recovered/Resolved]
  - Peripheral coldness [Recovered/Resolved]
  - Sinus bradycardia [Recovered/Resolved]
  - Hypotension [Recovered/Resolved]
  - Nodal arrhythmia [Recovered/Resolved]
